FAERS Safety Report 4378262-9 (Version None)
Quarter: 2004Q2

REPORT INFORMATION
  Report Type: 
  Country: None (occurrence: None)
  Receive Date: 20040601
  Receipt Date: 20040227
  Transmission Date: 20050107
  Serious: No
  Sender: FDA-Public Use
  Company Number: WAES 0403USA00032

PATIENT
  Age: 47 Year
  Sex: Male
  Weight: 78.4723 kg

DRUGS (6)
  1. ZETIA [Suspect]
     Indication: HYPERCHOLESTEROLAEMIA
     Dosage: 10MG/DAILY/PO
     Route: 048
  2. COUMADIN [Concomitant]
  3. PLAVIX [Concomitant]
  4. ZESTRIL [Concomitant]
  5. ATENOLOL [Concomitant]
  6. NITROGLYCERIN [Concomitant]

REACTIONS (2)
  - INTERNATIONAL NORMALISED RATIO INCREASED [None]
  - PROTHROMBIN TIME PROLONGED [None]
